FAERS Safety Report 14300518 (Version 1)
Quarter: 2017Q4

REPORT INFORMATION
  Report Type: Report from Study
  Country: CA (occurrence: CA)
  Receive Date: 20171219
  Receipt Date: 20171219
  Transmission Date: 20180321
  Serious: Yes (Other)
  Sender: FDA-Public Use
  Company Number: CA-UCBSA-2016043719

PATIENT
  Age: 31 Year
  Sex: Female
  Weight: 55 kg

DRUGS (6)
  1. CERTOLIZUMAB PEGOL [Suspect]
     Active Substance: CERTOLIZUMAB PEGOL
     Dosage: UNK
     Dates: end: 20170525
  2. CERTOLIZUMAB PEGOL [Suspect]
     Active Substance: CERTOLIZUMAB PEGOL
     Dosage: UNK
     Dates: start: 2017, end: 201708
  3. PREDNISOLONE. [Concomitant]
     Active Substance: PREDNISOLONE
     Indication: LOCALISED INFECTION
  4. CERTOLIZUMAB PEGOL [Suspect]
     Active Substance: CERTOLIZUMAB PEGOL
     Indication: RHEUMATOID ARTHRITIS
     Dosage: 400 MG, EV 2 WEEKS(QOW)
     Route: 058
     Dates: start: 20161112
  5. KEFLEX [Concomitant]
     Active Substance: CEPHALEXIN
     Indication: LOCALISED INFECTION
  6. CLINDAMYCIN. [Concomitant]
     Active Substance: CLINDAMYCIN
     Indication: LOCALISED INFECTION

REACTIONS (3)
  - Localised infection [Recovered/Resolved]
  - Nasopharyngitis [Unknown]
  - Breast feeding [Unknown]

NARRATIVE: CASE EVENT DATE: 20161112
